FAERS Safety Report 13837631 (Version 1)
Quarter: 2017Q3

REPORT INFORMATION
  Report Type: Spontaneous
  Country: US (occurrence: US)
  Receive Date: 20170805
  Receipt Date: 20170805
  Transmission Date: 20171127
  Serious: No
  Sender: FDA-Public Use
  Company Number: PHHY2017US074656

PATIENT
  Age: 70 Year
  Sex: Male

DRUGS (2)
  1. VOLTAREN [Suspect]
     Active Substance: DICLOFENAC SODIUM
     Indication: ARTHRALGIA
     Dosage: 100 MG, UNK
     Route: 065
     Dates: start: 201611
  2. IBUPROFEN. [Suspect]
     Active Substance: IBUPROFEN
     Indication: PAIN
     Dosage: 2 UNK, UNK
     Route: 065

REACTIONS (4)
  - Drug administered at inappropriate site [Unknown]
  - Product use in unapproved indication [Unknown]
  - Burning sensation [Unknown]
  - Contraindicated product administered [Unknown]
